FAERS Safety Report 6012993-X (Version None)
Quarter: 2008Q4

REPORT INFORMATION
  Report Type: 
  Country: None (occurrence: None)
  Receive Date: 20081217
  Receipt Date: 20081203
  Transmission Date: 20090506
  Serious: Yes (Other)
  Sender: FDA-Public Use
  Company Number: 2008S1021581

PATIENT
  Age: 28 Year
  Sex: Female

DRUGS (1)
  1. FENTANYL TRANSDERMAL SYSTEM [Suspect]
     Indication: COMPLEX REGIONAL PAIN SYNDROME
     Dosage: TRANSDERMAL
     Route: 062
     Dates: start: 20080101, end: 20081203

REACTIONS (4)
  - COMA [None]
  - DRUG EFFECT INCREASED [None]
  - SOMNOLENCE [None]
  - WRONG TECHNIQUE IN DRUG USAGE PROCESS [None]
